FAERS Safety Report 8029648-2 (Version None)
Quarter: 2012Q1

REPORT INFORMATION
  Report Type: 
  Country: None (occurrence: None)
  Receive Date: 20120109
  Receipt Date: 20120104
  Transmission Date: 20120608
  Serious: Yes (Other)
  Sender: FDA-Public Use
  Company Number: US-PFIZER INC-2012002700

PATIENT
  Sex: Male
  Weight: 90.7 kg

DRUGS (3)
  1. OXYCODONE [Concomitant]
     Indication: PAIN
     Dosage: 30 MG
  2. LYRICA [Suspect]
     Indication: PROCEDURAL PAIN
     Dosage: 100 MG, 2X/DAY
     Route: 048
     Dates: start: 20111221, end: 20111228
  3. TORADOL [Concomitant]
     Dosage: 10 MG

REACTIONS (5)
  - DYSPNOEA [None]
  - SWOLLEN TONGUE [None]
  - TONGUE DISORDER [None]
  - GLOSSODYNIA [None]
  - DYSPHAGIA [None]
